FAERS Safety Report 20391644 (Version 7)
Quarter: 2024Q4

REPORT INFORMATION
  Report Type: Spontaneous
  Country: US (occurrence: US)
  Receive Date: 20220128
  Receipt Date: 20241217
  Transmission Date: 20250115
  Serious: No
  Sender: PFIZER
  Company Number: US-PFIZER INC-202101882998

PATIENT
  Age: 75 Year
  Sex: Female

DRUGS (4)
  1. IBRANCE [Suspect]
     Active Substance: PALBOCICLIB
     Indication: Breast cancer female
     Dosage: 125 MG
  2. IBRANCE [Suspect]
     Active Substance: PALBOCICLIB
     Dosage: TAKE 1 TABLET (75 MG TOTAL) IN THE MORNING (TAKE 3 WEEKS ON 2 WEEKS OFF)
     Route: 048
  3. NORVASC [Concomitant]
     Active Substance: AMLODIPINE BESYLATE
     Dosage: 1 TABLET (5 MG TOTAL) IN THE MORNING AND 1 TABLET (5 MG TOTAL) BEFORE BEDTIME
     Route: 048
  4. NEURONTIN [Concomitant]
     Active Substance: GABAPENTIN
     Dosage: BEGIN ONE AT NIGHT FOR A WEEK THEN ONCE BID FOR A WEEK THEN ONE TID

REACTIONS (4)
  - White blood cell count decreased [Unknown]
  - Infection [Unknown]
  - Urinary tract infection [Unknown]
  - Off label use [Unknown]
